FAERS Safety Report 7953819-4 (Version None)
Quarter: 2011Q4

REPORT INFORMATION
  Report Type: 
  Country: None (occurrence: None)
  Receive Date: 20111202
  Receipt Date: 20111122
  Transmission Date: 20120403
  Serious: Yes (Death)
  Sender: FDA-Public Use
  Company Number: US-JNJFOC-20111109963

PATIENT
  Sex: Male

DRUGS (2)
  1. ACETAMINOPHEN [Suspect]
     Route: 048
  2. ACETAMINOPHEN [Suspect]
     Indication: PAIN
     Dosage: DAILY FOR OVER A YEAR
     Route: 048

REACTIONS (2)
  - HEPATIC FAILURE [None]
  - INTENTIONAL DRUG MISUSE [None]
